FAERS Safety Report 22016409 (Version 1)
Quarter: 2023Q1

REPORT INFORMATION
  Report Type: Report from Study
  Country: US (occurrence: US)
  Receive Date: 20230221
  Receipt Date: 20230221
  Transmission Date: 20230417
  Serious: Yes (Hospitalization)
  Sender: FDA-Public Use
  Company Number: US-MYLANLABS-2023M1018221

PATIENT
  Sex: Female

DRUGS (2)
  1. TRASTUZUMAB [Suspect]
     Active Substance: TRASTUZUMAB
     Indication: Breast cancer
     Dosage: UNK
     Route: 065
  2. VINORELBINE [Suspect]
     Active Substance: VINORELBINE TARTRATE
     Indication: Breast cancer
     Dosage: 25 MILLIGRAM/SQ. METER, CYCLE (21-DAY CYCLE WITH FOUR PLANNED CYCLES)
     Route: 065

REACTIONS (2)
  - Chills [Unknown]
  - Pyrexia [Unknown]
